FAERS Safety Report 6310474-7 (Version None)
Quarter: 2009Q3

REPORT INFORMATION
  Report Type: 
  Country: None (occurrence: None)
  Receive Date: 20090814
  Receipt Date: 20090714
  Transmission Date: 20100115
  Serious: No
  Sender: FDA-Public Use
  Company Number: US-BAYER-200912392BCC

PATIENT
  Age: 83 Year
  Sex: Female
  Weight: 61 kg

DRUGS (6)
  1. ALEVE (CAPLET) [Suspect]
     Indication: MUSCULOSKELETAL PAIN
     Route: 048
     Dates: start: 20090701
  2. ATENOLOL [Concomitant]
     Route: 065
  3. OGEN [Concomitant]
     Route: 065
  4. ALLEGRA [Concomitant]
     Route: 065
  5. NEXIUM [Concomitant]
     Route: 065
  6. LOPID [Concomitant]
     Route: 065

REACTIONS (3)
  - ABDOMINAL DISCOMFORT [None]
  - DRY MOUTH [None]
  - INSOMNIA [None]
